FAERS Safety Report 7732473-0 (Version None)
Quarter: 2011Q3

REPORT INFORMATION
  Report Type: 
  Country: None (occurrence: None)
  Receive Date: 20110906
  Receipt Date: 20110823
  Transmission Date: 20111222
  Serious: Yes (Hospitalization)
  Sender: FDA-Public Use
  Company Number: US-ELI_LILLY_AND_COMPANY-US201108008078

PATIENT
  Age: 76 Year
  Sex: Male

DRUGS (5)
  1. OXYCODONE HCL [Concomitant]
  2. NORVASC [Concomitant]
  3. COZAAR [Concomitant]
     Dosage: 0.5 DF, UNK
  4. LUVOX [Concomitant]
     Dosage: 0.5 DF, UNK
  5. ZYPREXA [Suspect]
     Indication: AGGRESSION
     Dosage: 7.5 MG, QD
     Route: 065
     Dates: start: 20110701

REACTIONS (4)
  - OFF LABEL USE [None]
  - WRONG TECHNIQUE IN DRUG USAGE PROCESS [None]
  - OEDEMA PERIPHERAL [None]
  - AGGRESSION [None]
